FAERS Safety Report 8841428 (Version 1)
Quarter: 2012Q4

REPORT INFORMATION
  Report Type: 
  Country: JP (occurrence: JP)
  Receive Date: 20121015
  Receipt Date: 20121015
  Transmission Date: 20130627
  Serious: Yes (Other)
  Sender: FDA-Public Use
  Company Number: JP-ASTELLAS-2012US010129

PATIENT
  Age: 74 None
  Sex: Female
  Weight: 51 kg

DRUGS (7)
  1. PROGRAF [Suspect]
     Indication: LUNG DISORDER
     Dosage: 1.5 mg, UID/QD
     Route: 065
     Dates: start: 20120403, end: 20120501
  2. PROGRAF [Suspect]
     Dosage: 1 mg, UID/QD
     Route: 065
     Dates: start: 20120502
  3. SIMPONI [Suspect]
     Indication: RHEUMATOID ARTHRITIS
     Dosage: 100 mg, Monthly
     Route: 058
     Dates: start: 20120113
  4. DUROTEP [Concomitant]
     Indication: RHEUMATOID ARTHRITIS
     Dosage: 25 ug/hr
     Route: 062
  5. PREDNISOLONE [Concomitant]
     Indication: RHEUMATOID ARTHRITIS
     Dosage: 6 mg, UID/QD
     Route: 041
  6. INFREE S [Concomitant]
     Indication: RHEUMATOID ARTHRITIS
     Dosage: UNK
     Route: 048
  7. NEUROTROPIN                        /00398601/ [Concomitant]
     Indication: RHEUMATOID ARTHRITIS
     Dosage: UNK
     Route: 065

REACTIONS (3)
  - Off label use [Unknown]
  - Hypothyroidism [Recovering/Resolving]
  - Nausea [Recovered/Resolved]
